FAERS Safety Report 7952654-0 (Version None)
Quarter: 2011Q4

REPORT INFORMATION
  Report Type: 
  Country: None (occurrence: None)
  Receive Date: 20111201
  Receipt Date: 20110523
  Transmission Date: 20120403
  Serious: Yes (Hospitalization)
  Sender: FDA-Public Use
  Company Number: US-BAYER-201026126NA

PATIENT
  Age: 26 Year
  Sex: Female
  Weight: 75 kg

DRUGS (15)
  1. ALKA SELTZER [Concomitant]
     Indication: PAIN
     Dates: start: 20091201
  2. DEPO-PROVERA [Concomitant]
  3. YASMIN [Suspect]
  4. FLAGYL [Concomitant]
     Indication: VAGINITIS BACTERIAL
     Dosage: 500 MG (DAILY DOSE), ,
  5. ROLAIDS [Concomitant]
  6. YASMIN [Suspect]
     Indication: CONTRACEPTION
     Route: 048
  7. YAZ [Suspect]
     Indication: CONTRACEPTION
     Route: 048
     Dates: start: 20090601, end: 20091101
  8. BISMUTH SUBSALICYLATE [Concomitant]
     Indication: PAIN
     Dates: start: 20091201
  9. ANTACIDS [Concomitant]
  10. ALIMENTARY TRACT AND METABOLISM [Concomitant]
  11. MICRONOR [Concomitant]
  12. YAZ [Suspect]
  13. DYAZIDE [Concomitant]
     Indication: HYPERTENSION
     Dosage: UNK
     Route: 048
     Dates: start: 20090101
  14. ORTHO TRI-CYCLEN LO [Concomitant]
  15. ZIAC [Concomitant]
     Dosage: 2.5

REACTIONS (4)
  - CHOLELITHIASIS [None]
  - VOMITING [None]
  - CHOLECYSTITIS CHRONIC [None]
  - NAUSEA [None]
